FAERS Safety Report 5343390-8 (Version None)
Quarter: 2007Q2

REPORT INFORMATION
  Report Type: 
  Country: None (occurrence: None)
  Receive Date: 20070504
  Receipt Date: 20060829
  Transmission Date: 20071010
  Serious: No
  Sender: FDA-Public Use
  Company Number: 06P-163-0342499-00

PATIENT

DRUGS (1)
  1. ERYTHROMYCIN [Suspect]
     Indication: DRUG USE FOR UNKNOWN INDICATION

REACTIONS (1)
  - ANAPHYLACTIC REACTION [None]
